FAERS Safety Report 13781043 (Version 1)
Quarter: 2017Q3

REPORT INFORMATION
  Report Type: Spontaneous
  Country: US (occurrence: US)
  Receive Date: 20170722
  Receipt Date: 20170722
  Transmission Date: 20171127
  Serious: Yes (Other)
  Sender: FDA-Public Use
  Company Number: None

PATIENT
  Age: 50 Year
  Sex: Female

DRUGS (1)
  1. DESVENLAF(P) ER (DESVENLAFAXINE ER) [Suspect]
     Active Substance: DESVENLAFAXINE
     Route: 048

REACTIONS (6)
  - Headache [None]
  - Paraesthesia [None]
  - Migraine [None]
  - Nausea [None]
  - Mood altered [None]
  - Hypertension [None]

NARRATIVE: CASE EVENT DATE: 20170722
